FAERS Safety Report 25092957 (Version 1)
Quarter: 2025Q1

REPORT INFORMATION
  Report Type: Report from Study
  Country: FR (occurrence: FR)
  Receive Date: 20250319
  Receipt Date: 20250319
  Transmission Date: 20250409
  Serious: Yes (Hospitalization)
  Sender: AUROBINDO
  Company Number: FR-AUROBINDO-AUR-APL-2025-014588

PATIENT
  Age: 48 Year
  Sex: Female

DRUGS (7)
  1. PEMETREXED [Suspect]
     Active Substance: PEMETREXED
     Indication: Non-small cell lung cancer
     Route: 065
     Dates: start: 202012
  2. PEMETREXED [Suspect]
     Active Substance: PEMETREXED
     Indication: Metastasis
     Route: 065
     Dates: start: 202109
  3. GEMCITABINE [Suspect]
     Active Substance: GEMCITABINE
     Indication: Metastasis
     Route: 065
  4. PEMBROLIZUMAB [Suspect]
     Active Substance: PEMBROLIZUMAB
     Indication: Non-small cell lung cancer
     Route: 065
     Dates: start: 202012
  5. PEMBROLIZUMAB [Suspect]
     Active Substance: PEMBROLIZUMAB
     Route: 065
  6. CISPLATIN [Suspect]
     Active Substance: CISPLATIN
     Indication: Non-small cell lung cancer
     Route: 065
     Dates: start: 202012
  7. METHYLPREDNISOLONE [Concomitant]
     Active Substance: METHYLPREDNISOLONE
     Indication: Product used for unknown indication
     Route: 042

REACTIONS (6)
  - Constipation [Unknown]
  - Vomiting [Unknown]
  - Weight decreased [Unknown]
  - Infection [Unknown]
  - Therapy interrupted [Unknown]
  - Therapy non-responder [Unknown]
